FAERS Safety Report 4317307-9 (Version None)
Quarter: 2004Q1

REPORT INFORMATION
  Report Type: 
  Country: None (occurrence: None)
  Receive Date: 20040303
  Receipt Date: 20040213
  Transmission Date: 20041129
  Serious: Yes (Other)
  Sender: FDA-Public Use
  Company Number: 235387

PATIENT
  Sex: Female

DRUGS (1)
  1. NOVOSEVEN [Suspect]
     Indication: FACTOR VII DEFICIENCY
     Dosage: 25-30 UG/KG 3X PER WEEK, INTRAVENOUS
     Route: 042

REACTIONS (1)
  - ANAPHYLACTIC REACTION [None]
